FAERS Safety Report 5497194-6 (Version None)
Quarter: 2007Q4

REPORT INFORMATION
  Report Type: 
  Country: None (occurrence: None)
  Receive Date: 20071025
  Receipt Date: 20061023
  Transmission Date: 20080405
  Serious: No
  Sender: FDA-Public Use
  Company Number: A0619240A

PATIENT
  Age: 41 Year
  Sex: Male

DRUGS (6)
  1. ADVAIR DISKUS 100/50 [Suspect]
     Indication: ASTHMA
     Dosage: 1PUFF TWICE PER DAY
     Route: 055
     Dates: start: 20060811
  2. ALBUTEROL [Suspect]
     Indication: ASTHMA
     Route: 055
  3. WINE [Suspect]
  4. POTASSIUM CHLORIDE [Concomitant]
  5. DIPROLENE [Concomitant]
  6. DIOVAN [Concomitant]

REACTIONS (1)
  - RASH [None]
